FAERS Safety Report 6691772-4 (Version None)
Quarter: 2010Q2

REPORT INFORMATION
  Report Type: 
  Country: None (occurrence: None)
  Receive Date: 20100422
  Receipt Date: 20090630
  Transmission Date: 20101027
  Serious: No
  Sender: FDA-Public Use
  Company Number: US-ASTRAZENECA-2009UW18309

PATIENT
  Age: 55 Year
  Sex: Female

DRUGS (6)
  1. TOPROL-XL [Suspect]
     Indication: CHEST DISCOMFORT
     Route: 048
     Dates: start: 20090409
  2. HYDROCHLOROTHIAZIDE [Suspect]
     Indication: CHEST DISCOMFORT
     Dosage: 12.5 MG
     Dates: start: 20090409
  3. NITROGLYCERIN [Suspect]
     Indication: CHEST DISCOMFORT
     Dates: start: 20090409
  4. DETROL [Concomitant]
  5. FLONASE [Concomitant]
  6. ESTROEST [Concomitant]

REACTIONS (2)
  - CHEST DISCOMFORT [None]
  - COUGH [None]
